FAERS Safety Report 20421325 (Version 4)
Quarter: 2022Q2

REPORT INFORMATION
  Report Type: Spontaneous
  Country: US (occurrence: US)
  Receive Date: 20220203
  Receipt Date: 20220525
  Transmission Date: 20220721
  Serious: No
  Sender: FDA-Public Use
  Company Number: US-PFIZER INC-202200029079

PATIENT
  Age: 64 Year
  Sex: Female
  Weight: 58.05 kg

DRUGS (2)
  1. GENOTROPIN [Suspect]
     Active Substance: SOMATROPIN
     Indication: Insulin-like growth factor decreased
     Dosage: 0.4 MG, DAILY
     Dates: start: 201911, end: 20211231
  2. GENOTROPIN [Suspect]
     Active Substance: SOMATROPIN
     Dosage: UNK
     Dates: start: 20220104

REACTIONS (3)
  - Product dose omission issue [Recovered/Resolved]
  - Device leakage [Recovered/Resolved]
  - Wrong technique in device usage process [Recovered/Resolved]

NARRATIVE: CASE EVENT DATE: 20211231
